FAERS Safety Report 17728247 (Version 3)
Quarter: 2020Q2

REPORT INFORMATION
  Report Type: Spontaneous
  Country: US (occurrence: US)
  Receive Date: 20200430
  Receipt Date: 20200615
  Transmission Date: 20200714
  Serious: No
  Sender: FDA-Public Use
  Company Number: US-PFIZER INC-2020173879

PATIENT
  Age: 73 Year
  Sex: Female
  Weight: 88 kg

DRUGS (1)
  1. ADVIL [Suspect]
     Active Substance: IBUPROFEN
     Indication: ARTHRALGIA
     Dosage: UNK (1 TO 2 TABLETS MAYBE TWICE PER WEEK; AT NIGHT)
     Route: 048

REACTIONS (3)
  - Weight decreased [Unknown]
  - Poor quality product administered [Unknown]
  - Product colour issue [Unknown]
